FAERS Safety Report 8060340-4 (Version None)
Quarter: 2012Q1

REPORT INFORMATION
  Report Type: 
  Country: None (occurrence: None)
  Receive Date: 20120120
  Receipt Date: 20111114
  Transmission Date: 20120608
  Serious: No
  Sender: FDA-Public Use
  Company Number: US-NOVEN-11US003616

PATIENT
  Sex: Male

DRUGS (1)
  1. FENTANYL [Suspect]
     Indication: PRODUCT USED FOR UNKNOWN INDICATION
     Dosage: 75 UG/HR
     Route: 062

REACTIONS (2)
  - DRUG ADMINISTRATION ERROR [None]
  - PRODUCT QUALITY ISSUE [None]
